FAERS Safety Report 25657425 (Version 1)
Quarter: 2025Q3

REPORT INFORMATION
  Report Type: Spontaneous
  Country: CN (occurrence: CN)
  Receive Date: 20250808
  Receipt Date: 20250808
  Transmission Date: 20251021
  Serious: Yes (Hospitalization, Other)
  Sender: BAXTER
  Company Number: None

PATIENT
  Age: 78 Year
  Sex: Male

DRUGS (1)
  1. CYCLOPHOSPHAMIDE [Suspect]
     Active Substance: CYCLOPHOSPHAMIDE
     Indication: Non-Hodgkin^s lymphoma
     Dosage: 0.9 G, QD
     Route: 041
     Dates: start: 20250712, end: 20250712

REACTIONS (9)
  - Myelosuppression [Recovering/Resolving]
  - Granulocyte count decreased [Recovered/Resolved]
  - White blood cell count decreased [Recovering/Resolving]
  - Pneumonia [Recovering/Resolving]
  - Hyperpyrexia [Recovering/Resolving]
  - Cough [Recovering/Resolving]
  - Productive cough [Recovered/Resolved]
  - Asthenia [Recovering/Resolving]
  - Critical illness [Recovering/Resolving]

NARRATIVE: CASE EVENT DATE: 20250723
